FAERS Safety Report 4336624-X (Version None)
Quarter: 2004Q2

REPORT INFORMATION
  Report Type: 
  Country: None (occurrence: None)
  Receive Date: 20040408
  Receipt Date: 20040330
  Transmission Date: 20050107
  Serious: Yes (Disabling)
  Sender: FDA-Public Use
  Company Number: KDL070963

PATIENT
  Age: 74 Year
  Sex: Female
  Weight: 84 kg

DRUGS (1)
  1. EPOGEN [Suspect]
     Indication: ANAEMIA
     Dosage: 40000 U, 1 IN 1 WEEKS, SC
     Route: 058
     Dates: start: 20030501, end: 20040320

REACTIONS (2)
  - BLINDNESS [None]
  - OPTIC NEUROPATHY [None]
